FAERS Safety Report 9606950 (Version 4)
Quarter: 2014Q2

REPORT INFORMATION
  Report Type: Report from Study
  Country: CA (occurrence: CA)
  Receive Date: 20131008
  Receipt Date: 20140519
  Transmission Date: 20141212
  Serious: Yes (Other)
  Sender: FDA-Public Use
  Company Number: CA-ROCHE-1166088

PATIENT
  Age: 70 Year
  Sex: Male
  Weight: 65 kg

DRUGS (5)
  1. ACTEMRA [Suspect]
     Indication: RHEUMATOID ARTHRITIS
     Route: 042
     Dates: start: 20110428
  2. ACTEMRA [Suspect]
     Dosage: HALF DOSE
     Route: 042
     Dates: start: 20121016
  3. ACTEMRA [Suspect]
     Route: 042
     Dates: start: 20130402
  4. NEXIUM [Concomitant]
  5. AVAPRO [Concomitant]

REACTIONS (6)
  - Felty^s syndrome [Unknown]
  - Platelet count decreased [Recovered/Resolved]
  - Arthralgia [Unknown]
  - Weight increased [Unknown]
  - Nasal congestion [Recovering/Resolving]
  - Headache [Recovering/Resolving]
